FAERS Safety Report 10083486 (Version 1)
Quarter: 2014Q2

REPORT INFORMATION
  Report Type: Spontaneous
  Country: US (occurrence: None)
  Receive Date: 20140416
  Receipt Date: 20140416
  Transmission Date: 20141212
  Serious: Yes (Disabling, Other)
  Sender: FDA-Public Use
  Company Number: None

PATIENT
  Age: 49 Year
  Sex: Female
  Weight: 67.13 kg

DRUGS (2)
  1. CYMBALTA [Suspect]
     Indication: POST-TRAUMATIC STRESS DISORDER
     Route: 048
     Dates: start: 20140409
  2. CYMBALTA [Suspect]
     Indication: FIBROMYALGIA
     Route: 048
     Dates: start: 20140409

REACTIONS (11)
  - Drug withdrawal syndrome [None]
  - Disorientation [None]
  - Dizziness [None]
  - Vertigo [None]
  - Nausea [None]
  - Anxiety [None]
  - Irritability [None]
  - Nightmare [None]
  - Dizziness [None]
  - Nausea [None]
  - Asthenia [None]
